FAERS Safety Report 7323593-3 (Version None)
Quarter: 2011Q1

REPORT INFORMATION
  Report Type: 
  Country: None (occurrence: None)
  Receive Date: 20110301
  Receipt Date: 20110223
  Transmission Date: 20110831
  Serious: Yes (Other)
  Sender: FDA-Public Use
  Company Number: US-PFIZER INC-2010152129

PATIENT
  Sex: Male

DRUGS (2)
  1. NEURONTIN [Suspect]
     Indication: PERIPHERAL SENSORY NEUROPATHY
     Dosage: 600 MG, 4X/DAY
     Route: 048
     Dates: start: 20030101, end: 20090101
  2. LYRICA [Suspect]
     Indication: PERIPHERAL SENSORY NEUROPATHY
     Dosage: 150 MG, 2X/DAY
     Route: 048
     Dates: start: 20090101

REACTIONS (13)
  - ARTHRITIS [None]
  - VISUAL ACUITY REDUCED [None]
  - CORNEAL ABRASION [None]
  - DENTAL CARIES [None]
  - FALL [None]
  - SJOGREN'S SYNDROME [None]
  - INJURY CORNEAL [None]
  - TOOTH LOSS [None]
  - FACET JOINT SYNDROME [None]
  - ULCERATIVE KERATITIS [None]
  - EYE PAIN [None]
  - SOMNOLENCE [None]
  - PAIN IN EXTREMITY [None]
